FAERS Safety Report 14519443 (Version 1)
Quarter: 2018Q1

REPORT INFORMATION
  Report Type: Spontaneous
  Country: SK (occurrence: SK)
  Receive Date: 20180212
  Receipt Date: 20180212
  Transmission Date: 20180509
  Serious: Yes (Hospitalization, Other)
  Sender: FDA-Public Use
  Company Number: SK-MYLANLABS-2018M1009041

PATIENT
  Sex: Female

DRUGS (8)
  1. CISPLATIN. [Suspect]
     Active Substance: CISPLATIN
     Indication: LUNG ADENOCARCINOMA
     Dosage: UNK, CYCLE
  2. PEMETREXED. [Suspect]
     Active Substance: PEMETREXED
     Indication: LUNG ADENOCARCINOMA
     Dosage: UNK, CYCLE
  3. CRIZOTINIB [Suspect]
     Active Substance: CRIZOTINIB
     Indication: LUNG ADENOCARCINOMA
     Dosage: UNK
  4. DOCETAXEL. [Suspect]
     Active Substance: DOCETAXEL
     Indication: LUNG ADENOCARCINOMA
     Dosage: UNK UNK, CYCLE
     Dates: start: 201412, end: 201507
  5. CISPLATIN. [Suspect]
     Active Substance: CISPLATIN
     Dosage: UNK, CYCLE
  6. VINORELBINE [Suspect]
     Active Substance: VINORELBINE\VINORELBINE TARTRATE
     Indication: LUNG ADENOCARCINOMA
     Dosage: UNK, CYCLE
  7. PEMETREXED. [Suspect]
     Active Substance: PEMETREXED
     Dosage: UNK, CYCLE
  8. NINTEDANIB [Suspect]
     Active Substance: NINTEDANIB
     Indication: LUNG ADENOCARCINOMA
     Dosage: UNK UNK, CYCLE
     Dates: start: 201412, end: 201507

REACTIONS (8)
  - Angina pectoris [Unknown]
  - Mucosal inflammation [Unknown]
  - Oedema peripheral [Recovering/Resolving]
  - Ocular discomfort [Recovering/Resolving]
  - Liver disorder [Recovered/Resolved]
  - Hypothyroidism [Recovering/Resolving]
  - Febrile neutropenia [Unknown]
  - Oesophagitis [Unknown]
